FAERS Safety Report 22289925 (Version 1)
Quarter: 2023Q2

REPORT INFORMATION
  Report Type: Spontaneous
  Country: CN (occurrence: CN)
  Receive Date: 20230505
  Receipt Date: 20230505
  Transmission Date: 20230722
  Serious: Yes (Hospitalization)
  Sender: FDA-Public Use
  Company Number: CN-BAYER-2023A057799

PATIENT
  Age: 65 Year
  Sex: Female
  Weight: 45 kg

DRUGS (2)
  1. STIVARGA [Suspect]
     Active Substance: REGORAFENIB
     Indication: Rectal cancer
     Dosage: 80 MG, QD
     Route: 048
     Dates: start: 20230328, end: 20230411
  2. TORIPALIMAB [Suspect]
     Active Substance: TORIPALIMAB
     Indication: Targeted cancer therapy
     Dosage: 240 MG, 1 TIME EVERY 14 DAYS
     Route: 041
     Dates: start: 20230328, end: 20230328

REACTIONS (8)
  - Skin discolouration [Not Recovered/Not Resolved]
  - Skin induration [None]
  - Rash [Not Recovered/Not Resolved]
  - Hypoaesthesia [None]
  - Pain of skin [Not Recovered/Not Resolved]
  - Skin burning sensation [Not Recovered/Not Resolved]
  - Gait disturbance [None]
  - Off label use [None]

NARRATIVE: CASE EVENT DATE: 20230328
